FAERS Safety Report 9416847 (Version 1)
Quarter: 2013Q3

REPORT INFORMATION
  Report Type: Spontaneous
  Country: BR (occurrence: BR)
  Receive Date: 20130724
  Receipt Date: 20130724
  Transmission Date: 20140515
  Serious: Yes (Other)
  Sender: FDA-Public Use
  Company Number: BR-JNJFOC-20130709161

PATIENT
  Age: 22 Year
  Sex: Female
  Weight: 58 kg

DRUGS (6)
  1. EVRA [Suspect]
     Indication: CONTRACEPTION
     Route: 062
     Dates: start: 201007
  2. EVRA [Suspect]
     Indication: ENDOMETRIOSIS
     Route: 062
     Dates: start: 201007
  3. EVRA [Suspect]
     Indication: HORMONE REPLACEMENT THERAPY
     Route: 062
     Dates: start: 201007
  4. EVRA [Suspect]
     Indication: DRUG THERAPY
     Route: 062
     Dates: start: 201007
  5. EVRA [Suspect]
     Indication: HYPOMENORRHOEA
     Route: 062
     Dates: start: 201007
  6. OMEPRAZOLE [Concomitant]
     Indication: GASTRITIS
     Route: 065

REACTIONS (10)
  - Uterine malposition [Not Recovered/Not Resolved]
  - Cervix inflammation [Unknown]
  - Bacterial vaginosis [Unknown]
  - Uterine disorder [Unknown]
  - Lactation disorder [Not Recovered/Not Resolved]
  - Therapeutic response unexpected [Not Recovered/Not Resolved]
  - Product quality issue [Unknown]
  - Wrong technique in drug usage process [Unknown]
  - Off label use [Not Recovered/Not Resolved]
  - Product quality issue [Unknown]
